FAERS Safety Report 23427930 (Version 11)
Quarter: 2025Q2

REPORT INFORMATION
  Report Type: Spontaneous
  Country: US (occurrence: US)
  Receive Date: 20240122
  Receipt Date: 20250627
  Transmission Date: 20250716
  Serious: Yes (Hospitalization, Other)
  Sender: PFIZER
  Company Number: US-PFIZER INC-PV202300163159

PATIENT
  Age: 84 Year
  Sex: Female
  Weight: 57.143 kg

DRUGS (21)
  1. XELJANZ XR [Suspect]
     Active Substance: TOFACITINIB CITRATE
     Dosage: 11 MG, DAILY (1 TABLET DAILY)/1 TABLET DAILY FOR 90 DAYS
     Dates: start: 20231027
  2. DONA [GLUCOSAMINE SULFATE] [Concomitant]
     Dosage: 1 TABLET ONCE A DAY
  3. MYRBETRIQ [Concomitant]
     Active Substance: MIRABEGRON
     Dosage: 25 MG, DAILY
  4. ELIQUIS [Concomitant]
     Active Substance: APIXABAN
     Dosage: 2.5 MG TABLET: 1 TWICE DAILY
  5. LIDOCAINE [Concomitant]
     Active Substance: LIDOCAINE
     Route: 061
  6. BIOTIN [Concomitant]
     Active Substance: BIOTIN
     Dosage: 5000 UG, 1X/DAY
  7. DORZOLAMIDE\TIMOLOL [Concomitant]
     Active Substance: DORZOLAMIDE\TIMOLOL
     Dosage: 1 DROP, 2X/DAY (1 DROP OU BID)
     Route: 047
  8. METHAZOLAMIDE [Concomitant]
     Active Substance: METHAZOLAMIDE
     Dosage: 0.5 TABLET ONCE A DAY
  9. OMEPRAZOLE [Concomitant]
     Active Substance: OMEPRAZOLE
     Dosage: 1 CAPSULE ONCE A DAY
  10. CALCIUM CARBONATE [Concomitant]
     Active Substance: CALCIUM CARBONATE
     Dosage: 1 TABLET ONCE A DAY (BEFORE A MEAL)
  11. FUROSEMIDE [Concomitant]
     Active Substance: FUROSEMIDE
     Dosage: 1 TABLET ONCE A DAY
  12. GABAPENTIN [Concomitant]
     Active Substance: GABAPENTIN
     Dosage: UNK, DAILY
     Route: 048
  13. CYANOCOBALAMIN [Concomitant]
     Active Substance: CYANOCOBALAMIN
     Dosage: 1 TABLET ONCE A DAY
  14. LATANOPROST [Concomitant]
     Active Substance: LATANOPROST
     Route: 047
  15. VALSARTAN [Concomitant]
     Active Substance: VALSARTAN
     Dosage: UNK, DAILY
  16. ESTROGEL [Concomitant]
     Active Substance: ESTRADIOL
     Dosage: 1.25 GRAM/ACTUATION (0.06%) TRANSDERMAL GEL PUMP: 1 GRAMS ONCE A DAY
  17. BRIMONIDINE TARTRATE [Concomitant]
     Active Substance: BRIMONIDINE TARTRATE
     Dosage: 0.2% OPHTHALMIC SOLUTION: 2 TIMES A DAY LEFT EYE
     Route: 047
  18. MINERALS\VITAMINS [Concomitant]
     Active Substance: MINERALS\VITAMINS
     Dosage: 7,160 UNIT-113 MG-100 UNIT TABLET: 1 TABLET DAILY
  19. HYDRALAZINE [Concomitant]
     Active Substance: HYDRALAZINE HYDROCHLORIDE
     Dosage: 1 TWICE DAILY
  20. VITAMIN D3 [Concomitant]
     Active Substance: CHOLECALCIFEROL
     Dosage: 500 IU, DAILY
  21. ACETAMINOPHEN [Concomitant]
     Active Substance: ACETAMINOPHEN

REACTIONS (14)
  - Atrial fibrillation [Recovering/Resolving]
  - Intracranial haemangioma [Unknown]
  - Myelodysplastic syndrome [Not Recovered/Not Resolved]
  - Pain in extremity [Unknown]
  - Muscular weakness [Unknown]
  - Pain [Unknown]
  - Synovial cyst [Unknown]
  - Joint swelling [Unknown]
  - Arthralgia [Unknown]
  - Red blood cell count decreased [Unknown]
  - Renal disorder [Unknown]
  - Abdominal discomfort [Recovering/Resolving]
  - Balance disorder [Unknown]
  - Mouth ulceration [Unknown]
